FAERS Safety Report 18502462 (Version 1)
Quarter: 2020Q4

REPORT INFORMATION
  Report Type: Spontaneous
  Country: US (occurrence: US)
  Receive Date: 20201113
  Receipt Date: 20201113
  Transmission Date: 20210114
  Serious: Yes (Other)
  Sender: FDA-Public Use
  Company Number: US-INCYTE CORPORATION-2020IN010949

PATIENT

DRUGS (1)
  1. JAKAFI [Suspect]
     Active Substance: RUXOLITINIB
     Indication: MYELOFIBROSIS
     Dosage: 10 MILLIGRAM, BID
     Route: 048
     Dates: start: 20200703

REACTIONS (5)
  - Dizziness [Unknown]
  - Urinary tract infection [Unknown]
  - Energy increased [Recovering/Resolving]
  - Fatigue [Unknown]
  - Haemoglobin decreased [Unknown]
